FAERS Safety Report 13160223 (Version 2)
Quarter: 2017Q2

REPORT INFORMATION
  Report Type: Report from Study
  Country: None (occurrence: BR)
  Receive Date: 20170127
  Receipt Date: 20170504
  Transmission Date: 20170830
  Serious: Yes (Hospitalization, Other)
  Sender: FDA-Public Use
  Company Number: BR-ABBVIE-17P-020-1854867-00

PATIENT
  Age: 65 Year
  Sex: Male
  Weight: 90 kg

DRUGS (10)
  1. ZETRON [Concomitant]
     Indication: DEPRESSION
     Route: 048
     Dates: start: 2014
  2. METADOXIL [Concomitant]
     Indication: PRODUCT USED FOR UNKNOWN INDICATION
     Route: 048
     Dates: start: 201607
  3. ROSUCOR [Concomitant]
     Active Substance: ROSUVASTATIN CALCIUM
     Indication: PRODUCT USED FOR UNKNOWN INDICATION
     Route: 048
     Dates: start: 201610
  4. LIPIDIL [Concomitant]
     Active Substance: FENOFIBRATE
     Indication: BLOOD CHOLESTEROL ABNORMAL
     Route: 048
     Dates: start: 2016
  5. HUMIRA [Suspect]
     Active Substance: ADALIMUMAB
     Indication: PSORIASIS
     Dosage: WEEK 0
     Route: 058
     Dates: start: 20090731, end: 20090731
  6. FUROSEMIDE. [Concomitant]
     Active Substance: FUROSEMIDE
     Indication: PRODUCT USED FOR UNKNOWN INDICATION
     Route: 048
     Dates: start: 20170419
  7. BENICAR [Concomitant]
     Active Substance: OLMESARTAN MEDOXOMIL
     Indication: PRODUCT USED FOR UNKNOWN INDICATION
     Route: 048
     Dates: start: 201610, end: 20170113
  8. SPIRIVA [Concomitant]
     Active Substance: TIOTROPIUM BROMIDE MONOHYDRATE
     Indication: LUNG DISORDER
     Route: 055
     Dates: start: 201610
  9. HUMIRA [Suspect]
     Active Substance: ADALIMUMAB
     Route: 058
     Dates: end: 20170309
  10. QUEROPAX [Concomitant]
     Active Substance: QUETIAPINE FUMARATE
     Indication: SLEEP DISORDER THERAPY
     Route: 048
     Dates: start: 2015

REACTIONS (12)
  - Blood urea increased [Unknown]
  - Blood creatinine increased [Unknown]
  - Pneumonia [Recovered/Resolved]
  - Blood uric acid increased [Unknown]
  - Hepatic steatosis [Recovering/Resolving]
  - Vitamin D deficiency [Not Recovered/Not Resolved]
  - Renal failure [Recovering/Resolving]
  - Hypertension [Unknown]
  - Blood cholesterol increased [Unknown]
  - Arrhythmia [Recovered/Resolved]
  - Full blood count abnormal [Unknown]
  - Blood triglycerides increased [Unknown]

NARRATIVE: CASE EVENT DATE: 2009
